FAERS Safety Report 6471865-7 (Version None)
Quarter: 2009Q4

REPORT INFORMATION
  Report Type: 
  Country: None (occurrence: None)
  Receive Date: 20091203
  Receipt Date: 20081202
  Transmission Date: 20100525
  Serious: No
  Sender: FDA-Public Use
  Company Number: US-AMGEN-KDL321733

PATIENT
  Sex: Female
  Weight: 112.6 kg

DRUGS (5)
  1. ENBREL [Suspect]
     Indication: PSORIATIC ARTHROPATHY
     Route: 058
     Dates: start: 20020101
  2. ENBREL [Suspect]
     Indication: RHEUMATOID ARTHRITIS
  3. ADVAIR DISKUS 100/50 [Concomitant]
  4. ALBUTEROL [Concomitant]
  5. VITAMIN D [Concomitant]

REACTIONS (3)
  - FALL [None]
  - HAND DEFORMITY [None]
  - HAND FRACTURE [None]
